FAERS Safety Report 4601563-3 (Version None)
Quarter: 2005Q1

REPORT INFORMATION
  Report Type: 
  Country: None (occurrence: None)
  Receive Date: 20050131
  Receipt Date: 20041213
  Transmission Date: 20050727
  Serious: Yes (Hospitalization)
  Sender: FDA-Public Use
  Company Number: 200419045US

PATIENT
  Age: 44 Year
  Sex: Male

DRUGS (4)
  1. TELITHROMYCIN (KETEK)  TABLETS [Suspect]
     Indication: UPPER RESPIRATORY TRACT INFECTION
     Dosage: 800 MG QD PO
     Route: 048
     Dates: start: 20041122
  2. CODEINE PHOSPHATE [Concomitant]
  3. GUAIFENESIN [Concomitant]
  4. PSEUDOEPHEDRINE HYDROCHLORIDE (ROBITUSSIN-DAC) [Concomitant]

REACTIONS (5)
  - ANGIONEUROTIC OEDEMA [None]
  - DRUG HYPERSENSITIVITY [None]
  - DYSPNOEA [None]
  - OEDEMA PERIPHERAL [None]
  - SWOLLEN TONGUE [None]
